FAERS Safety Report 8802560 (Version 1)
Quarter: 2012Q4

REPORT INFORMATION
  Report Type: 
  Country: IN (occurrence: IN)
  Receive Date: 20120921
  Receipt Date: 20120921
  Transmission Date: 20130627
  Serious: Yes (Death, Other)
  Sender: FDA-Public Use
  Company Number: PHHO2004IN03241

PATIENT
  Sex: Male

DRUGS (1)
  1. GLIVEC [Suspect]
     Route: 048
     Dates: start: 20031226

REACTIONS (2)
  - Death [Fatal]
  - Vomiting [Unknown]
